FAERS Safety Report 9602779 (Version 1)
Quarter: 2013Q4

REPORT INFORMATION
  Report Type: Spontaneous
  Country: US (occurrence: US)
  Receive Date: 20131007
  Receipt Date: 20131007
  Transmission Date: 20140711
  Serious: Yes (Hospitalization, Other)
  Sender: FDA-Public Use
  Company Number: US-BAYER-2013-119998

PATIENT
  Age: 46 Year
  Sex: Female
  Weight: 86.17 kg

DRUGS (7)
  1. YASMIN [Suspect]
  2. MOTRIN [Concomitant]
     Dosage: 800 MG, PRN EVERY 8 HOURS
     Route: 048
  3. PRENATAL [VIT C,CA+,CU+,B12,D2,FE+,MN+,B3,KI,B6,RETINOL,B2,B1] [Concomitant]
  4. MULTIVITAMIN [Concomitant]
     Dosage: DAILY
     Route: 048
  5. PERCOCET [OXYCODONE HYDROCHLORIDE,PARACETAMOL] [Concomitant]
     Indication: PAIN
  6. CYMBALTA [Concomitant]
     Indication: ANXIETY
     Dosage: 60 MG,DAILY
     Route: 048
  7. KEFLEX [Concomitant]
     Indication: CELLULITIS

REACTIONS (3)
  - Pulmonary embolism [None]
  - Cholelithiasis [None]
  - Pulmonary embolism [None]
